FAERS Safety Report 15235284 (Version 1)
Quarter: 2018Q3

REPORT INFORMATION
  Report Type: Spontaneous
  Country: US (occurrence: US)
  Receive Date: 20180709
  Receipt Date: 20180709
  Transmission Date: 20181010
  Serious: Yes (Disabling, Other)
  Sender: FDA-Public Use
  Company Number: None

PATIENT
  Age: 63 Year
  Sex: Female

DRUGS (16)
  1. LEVOFLOXACIN. [Suspect]
     Active Substance: LEVOFLOXACIN
     Route: 048
     Dates: start: 20180517, end: 20180601
  2. LEVOFLOXACIN. [Suspect]
     Active Substance: LEVOFLOXACIN
     Route: 048
     Dates: start: 20180508, end: 20180521
  3. CIPROFLOXACIN 750MG BID [Concomitant]
     Dates: start: 20180223, end: 20180306
  4. LEVOFLOXACIN 500MG [Concomitant]
     Active Substance: LEVOFLOXACIN
     Dates: start: 20180126, end: 20180204
  5. CIPROFLOXACIN 750MG BID [Concomitant]
     Dates: start: 20171218, end: 20171224
  6. PREDNISONE 40MG BID ?} TAPER [Concomitant]
     Dates: start: 20180417, end: 20180501
  7. PREDNISONE 5MG [Concomitant]
     Active Substance: PREDNISONE
     Dates: start: 20180223, end: 20180417
  8. LEVOFLOXACIN 500MG [Concomitant]
     Active Substance: LEVOFLOXACIN
     Dates: start: 20171012, end: 20171021
  9. LEVOFLOXACIN 500MG [Concomitant]
     Active Substance: LEVOFLOXACIN
     Dates: start: 20170727, end: 20170805
  10. CIPROFLOXACIN 750MG BID [Concomitant]
     Dates: start: 20170522, end: 20170620
  11. LEVOFLOXACIN 500MG [Concomitant]
     Active Substance: LEVOFLOXACIN
     Dates: start: 20171021, end: 20171030
  12. PREDNISONE 80MG ?} TAPER [Concomitant]
     Dates: start: 20170813, end: 20170819
  13. LEVOFLOXACIN 500MG [Concomitant]
     Active Substance: LEVOFLOXACIN
     Dates: start: 20180426, end: 20180509
  14. LEVOFLOXACIN 750MG [Concomitant]
     Active Substance: LEVOFLOXACIN
     Dates: start: 20171107, end: 20171113
  15. CIPROFLOXACIN 750MG BID [Concomitant]
     Dates: start: 20180309, end: 20180406
  16. PREDNISONE 40MG ?} TAPER [Concomitant]
     Dates: start: 20171105, end: 20171118

REACTIONS (1)
  - Tendon rupture [None]

NARRATIVE: CASE EVENT DATE: 20180601
